FAERS Safety Report 5971260-0 (Version None)
Quarter: 2008Q4

REPORT INFORMATION
  Report Type: 
  Country: None (occurrence: None)
  Receive Date: 20081128
  Receipt Date: 20081126
  Transmission Date: 20090506
  Serious: Yes (Other)
  Sender: FDA-Public Use
  Company Number: ZA-PFIZER INC-2008059127

PATIENT
  Age: 15 Year
  Sex: Female

DRUGS (2)
  1. CELEBREX [Suspect]
     Indication: LIMB INJURY
     Route: 048
     Dates: end: 20080505
  2. AUGMENTIN '125' [Concomitant]

REACTIONS (2)
  - EYE SWELLING [None]
  - RASH GENERALISED [None]
